FAERS Safety Report 8723540 (Version 3)
Quarter: 2012Q4

REPORT INFORMATION
  Report Type: 
  Country: US (occurrence: US)
  Receive Date: 20120814
  Receipt Date: 20120905
  Transmission Date: 20130627
  Serious: No
  Sender: FDA-Public Use
  Company Number: US-009507513-1208USA003210

PATIENT

DRUGS (2)
  1. IMPLANON [Suspect]
     Indication: CONTRACEPTION
     Dosage: 1 DF, UNK
     Route: 059
     Dates: start: 2009
  2. DEPO-PROVERA [Concomitant]

REACTIONS (2)
  - Implant site pain [Not Recovered/Not Resolved]
  - Complication of device removal [Unknown]
